FAERS Safety Report 7789937-3 (Version None)
Quarter: 2011Q3

REPORT INFORMATION
  Report Type: 
  Country: None (occurrence: None)
  Receive Date: 20110930
  Receipt Date: 20101116
  Transmission Date: 20111222
  Serious: No
  Sender: FDA-Public Use
  Company Number: US-ASTRAZENECA-2009SE23796

PATIENT
  Age: 60 Year
  Sex: Female
  Weight: 70.3 kg

DRUGS (8)
  1. CALCIUM CARBONATE [Concomitant]
  2. FOSAMAX [Concomitant]
     Indication: OSTEOPOROSIS
  3. VITAMIN D [Concomitant]
  4. RECLAST [Concomitant]
     Indication: OSTEOARTHRITIS
  5. NAPROSYN [Concomitant]
     Indication: OSTEOARTHRITIS
  6. ARIMIDEX [Suspect]
     Route: 048
     Dates: start: 20050101
  7. SYNTHROID [Concomitant]
     Indication: HYPOTHYROIDISM
  8. M.V.I. [Concomitant]

REACTIONS (8)
  - FATIGUE [None]
  - SWELLING [None]
  - OSTEOARTHRITIS [None]
  - WEIGHT INCREASED [None]
  - JOINT CREPITATION [None]
  - ARTHRALGIA [None]
  - DIARRHOEA [None]
  - PAIN [None]
